FAERS Safety Report 5929872-6 (Version None)
Quarter: 2008Q4

REPORT INFORMATION
  Report Type: 
  Country: None (occurrence: None)
  Receive Date: 20081024
  Receipt Date: 20081015
  Transmission Date: 20090506
  Serious: Yes (Hospitalization)
  Sender: FDA-Public Use
  Company Number: FR-GILEAD-2008-0018679

PATIENT
  Sex: Male
  Weight: 52 kg

DRUGS (13)
  1. TRUVADA [Suspect]
     Route: 048
     Dates: start: 20080708, end: 20080801
  2. HEPSERA [Suspect]
     Dates: start: 20040501, end: 20070901
  3. HEPSERA [Suspect]
     Dates: start: 20070901, end: 20080301
  4. HEPSERA [Suspect]
     Dates: start: 20080301, end: 20080701
  5. ZEFFIX [Suspect]
     Indication: HEPATITIS B VIRUS TEST
     Dates: start: 20060401, end: 20070901
  6. ZEFFIX [Suspect]
     Dates: start: 20070901, end: 20080301
  7. ZEFFIX [Suspect]
     Dates: start: 20080301, end: 20080701
  8. VIDEX [Suspect]
     Dates: start: 20050901, end: 20080701
  9. SUSTIVA [Concomitant]
     Dates: start: 20050901
  10. REYATAZ [Concomitant]
     Dates: start: 20050901
  11. NORVIR [Concomitant]
     Dates: start: 20050901
  12. NORSET [Concomitant]
     Dates: end: 20080801
  13. CRESTOR [Concomitant]
     Dates: end: 20080801

REACTIONS (2)
  - CYTOLYTIC HEPATITIS [None]
  - RENAL FAILURE [None]
